FAERS Safety Report 7021852-5 (Version None)
Quarter: 2010Q3

REPORT INFORMATION
  Report Type: 
  Country: None (occurrence: None)
  Receive Date: 20100930
  Receipt Date: 20100928
  Transmission Date: 20110219
  Serious: No
  Sender: FDA-Public Use
  Company Number: US-BIOGENIDEC-2010BI033497

PATIENT
  Sex: Female

DRUGS (2)
  1. AVONEX [Suspect]
     Indication: MULTIPLE SCLEROSIS
     Route: 030
     Dates: start: 20010501
  2. AVONEX [Suspect]
     Route: 030

REACTIONS (6)
  - BRAIN OEDEMA [None]
  - DRUG INEFFECTIVE [None]
  - GLAUCOMA [None]
  - MULTIPLE SCLEROSIS RELAPSE [None]
  - VITREOUS FLOATERS [None]
  - WEIGHT INCREASED [None]
